FAERS Safety Report 9672313 (Version 1)
Quarter: 2013Q4

REPORT INFORMATION
  Report Type: Report from Study
  Country: MX (occurrence: MX)
  Receive Date: 20131106
  Receipt Date: 20131106
  Transmission Date: 20140711
  Serious: Yes (Other)
  Sender: FDA-Public Use
  Company Number: PHHY2013MX124751

PATIENT
  Sex: Female

DRUGS (3)
  1. EXFORGE [Suspect]
     Indication: HYPERTENSION
     Dosage: 1 DF (160/5MG), DAILY
     Route: 048
     Dates: start: 201307, end: 201307
  2. METFORMIN 1A PHARMA [Suspect]
     Indication: DIABETES MELLITUS
     Dosage: 2 UNK, DAILY
  3. AMARYL [Suspect]
     Indication: DIABETES MELLITUS
     Dosage: 1 UKN, DAILY

REACTIONS (3)
  - Swelling face [Not Recovered/Not Resolved]
  - Local swelling [Not Recovered/Not Resolved]
  - Eye swelling [Not Recovered/Not Resolved]
